FAERS Safety Report 8254890 (Version 2)
Quarter: 2013Q1

REPORT INFORMATION
  Report Type: Report from Study
  Country: US (occurrence: US)
  Receive Date: 20111118
  Receipt Date: 20130125
  Transmission Date: 20140127
  Serious: Yes (Life-Threatening, Hospitalization)
  Sender: FDA-Public Use
  Company Number: US-ROCHE-798273

PATIENT
  Age: 77 Year
  Sex: Female
  Weight: 120.4 kg

DRUGS (25)
  1. BEVACIZUMAB [Suspect]
     Indication: ENDOMETRIAL CANCER
     Dosage: OVER 30-90 MINUTES ON DAY 1 (STARTING WITH CYCLE 2 FOR THOSE PTS ENTERING POST SURGERY) X 6 CYCLES;
     Route: 042
  2. IXABEPILONE [Suspect]
     Indication: ENDOMETRIAL CANCER
     Dosage: OVER 1 HR ON DAY 1 X 6 CYCLES; TOTAL DOSE ADMINISTERED: 60 MG;LAST ADMINISTERED DATE:07/JUL/2011
     Route: 042
  3. IXABEPILONE [Suspect]
     Dosage: OVER 1 HR ON DAY 1 X 6 CYCLES;
     Route: 042
  4. IXABEPILONE [Suspect]
     Dosage: DOSE WAS DELAYED BY 14 DAYS
     Route: 042
  5. CARBOPLATIN [Suspect]
     Indication: ENDOMETRIAL CANCER
     Dosage: AUC = 6 IV OVER 30 MINUTES ON DAY 1 X 6 CYCLES; TOTAL DOSE ADMINISTERED: 415 MG;LAST ADMINISTERED DA
     Route: 042
  6. CARBOPLATIN [Suspect]
     Dosage: AUC = 5 IV OVER 30 MINUTES ON DAY 1 X 6 CYCLES
     Route: 042
  7. CARBOPLATIN [Suspect]
     Dosage: DOSE WAS DELAYED BY 14 DAYS. UNIT DOSE WAS ALSO REDUCED.
     Route: 042
  8. FUROSEMIDE [Suspect]
     Indication: PRODUCT USED FOR UNKNOWN INDICATION
     Route: 065
  9. HALOPERIDOL [Suspect]
     Route: 065
  10. HYDRALAZINE [Suspect]
     Indication: PRODUCT USED FOR UNKNOWN INDICATION
     Route: 065
  11. LORAZEPAM [Suspect]
     Indication: PRODUCT USED FOR UNKNOWN INDICATION
     Route: 065
  12. METOPROLOL [Suspect]
     Indication: PRODUCT USED FOR UNKNOWN INDICATION
     Route: 065
  13. CEPHALEXIN [Concomitant]
     Indication: PRODUCT USED FOR UNKNOWN INDICATION
  14. OXYCODONE [Concomitant]
     Indication: PRODUCT USED FOR UNKNOWN INDICATION
  15. CHERATUSSIN AC [Concomitant]
     Indication: PRODUCT USED FOR UNKNOWN INDICATION
  16. ADVAIR DISKUS [Concomitant]
     Indication: PRODUCT USED FOR UNKNOWN INDICATION
  17. ZOFRAN [Concomitant]
     Indication: PRODUCT USED FOR UNKNOWN INDICATION
  18. PROCHLORPERAZINE [Concomitant]
     Indication: PRODUCT USED FOR UNKNOWN INDICATION
  19. PRAZOSIN [Concomitant]
     Indication: PRODUCT USED FOR UNKNOWN INDICATION
  20. CLONIDINE [Concomitant]
     Indication: PRODUCT USED FOR UNKNOWN INDICATION
  21. ALLOPURINOL [Concomitant]
     Indication: PRODUCT USED FOR UNKNOWN INDICATION
  22. KEPPRA [Concomitant]
     Indication: PRODUCT USED FOR UNKNOWN INDICATION
  23. VITAMIN D3 [Concomitant]
     Indication: PRODUCT USED FOR UNKNOWN INDICATION
  24. NIPRIDE [Concomitant]
     Indication: PRODUCT USED FOR UNKNOWN INDICATION
  25. NITROPASTE [Concomitant]
     Indication: PRODUCT USED FOR UNKNOWN INDICATION

REACTIONS (18)
  - Confusional state [Unknown]
  - Hypertension [Recovered/Resolved]
  - Dizziness [Not Recovered/Not Resolved]
  - Bronchospasm [Recovered/Resolved]
  - Wheezing [Recovered/Resolved]
  - Sinusitis [Unknown]
  - Neutrophil count decreased [Unknown]
  - Hypoxia [Recovered/Resolved]
  - Posterior reversible encephalopathy syndrome [Unknown]
  - Depressed level of consciousness [Unknown]
  - Cerebrovascular accident [Unknown]
  - Convulsion [Recovered/Resolved]
  - Cardiac failure [Unknown]
  - Neutropenic infection [Unknown]
  - Platelet count decreased [Recovered/Resolved]
  - Atelectasis [Unknown]
  - Bronchitis [Recovered/Resolved]
  - Pleural effusion [Recovered/Resolved]
